FAERS Safety Report 16762464 (Version 1)
Quarter: 2019Q3

REPORT INFORMATION
  Report Type: Spontaneous
  Country: GB (occurrence: ES)
  Receive Date: 20190831
  Receipt Date: 20190831
  Transmission Date: 20191005
  Serious: Yes (Death, Other)
  Sender: FDA-Public Use
  Company Number: GB-MICRO LABS LIMITED-ML2019-02087

PATIENT
  Age: 57 Year
  Sex: Male

DRUGS (4)
  1. RIFAMPICIN [Suspect]
     Active Substance: RIFAMPIN
  2. LEVETIRACETAM. [Suspect]
     Active Substance: LEVETIRACETAM
  3. ETHAMBUTOL [Suspect]
     Active Substance: ETHAMBUTOL HYDROCHLORIDE
  4. AMOXICILLIN. [Suspect]
     Active Substance: AMOXICILLIN

REACTIONS (1)
  - Stevens-Johnson syndrome [Fatal]
